FAERS Safety Report 9504586 (Version 2)
Quarter: 2013Q3

REPORT INFORMATION
  Report Type: Report from Study
  Country: US (occurrence: US)
  Receive Date: 20130906
  Receipt Date: 20130906
  Transmission Date: 20140515
  Serious: Yes (Hospitalization)
  Sender: FDA-Public Use
  Company Number: US-TAKEDA-TPA2013A02961

PATIENT
  Age: 60 Year
  Sex: Male
  Weight: 117.4 kg

DRUGS (14)
  1. ALLOPURINOL [Suspect]
     Indication: GOUT
     Dosage: UNK UNK, QD
     Route: 048
     Dates: start: 20120725, end: 20130416
  2. FEBUXOSTAT [Suspect]
     Indication: GOUT
     Dosage: UNK UNK, QD
     Route: 048
     Dates: start: 20120725, end: 20130416
  3. ALLOPURINOL [Suspect]
     Dosage: UNK UNK, QD
     Route: 048
     Dates: start: 20130426
  4. FEBUXOSTAT [Suspect]
     Dosage: UNK UNK, QD
     Route: 048
     Dates: start: 20130426
  5. XOLAIR [Concomitant]
     Indication: ASTHMA
     Dosage: UNK, Q2WEEKS
     Route: 058
     Dates: start: 20020430
  6. ADVAIR [Concomitant]
     Indication: ASTHMA
     Dosage: 1 PUFF, BID
     Route: 050
     Dates: start: 200203
  7. WARFARIN [Concomitant]
     Indication: ATRIAL FIBRILLATION
     Dosage: 5 MG, QD
     Route: 048
     Dates: start: 20120715
  8. WARFARIN [Concomitant]
     Dosage: 5 MG, QD
     Route: 048
     Dates: start: 201209
  9. LOSARTAN [Concomitant]
     Indication: HYPERTENSION
     Dosage: 50 MG, QD
     Route: 048
     Dates: start: 20120518
  10. DIGOXIN [Concomitant]
     Indication: CARDIAC FAILURE CONGESTIVE
     Dosage: 0.25 MG, QD
     Route: 048
     Dates: start: 2004
  11. XOPENEX [Concomitant]
     Indication: ASTHMA
     Dosage: 0.63 MG, PRN
     Route: 048
     Dates: start: 1999
  12. VICODIN [Concomitant]
     Indication: INTERVERTEBRAL DISC DEGENERATION
     Dosage: 1-2 TABLET, PRN
     Route: 048
     Dates: start: 1999
  13. VICODIN [Concomitant]
     Indication: PAIN
  14. METOPROLOL [Concomitant]
     Indication: ATRIAL FIBRILLATION
     Dosage: 150 MG, QD
     Route: 048
     Dates: start: 20120808

REACTIONS (3)
  - Angina pectoris [Recovered/Resolved]
  - Presyncope [Recovered/Resolved]
  - Atrial fibrillation [Recovered/Resolved]
